FAERS Safety Report 9442815 (Version 1)
Quarter: 2013Q3

REPORT INFORMATION
  Report Type: Report from Study
  Country: US (occurrence: US)
  Receive Date: 20130806
  Receipt Date: 20130806
  Transmission Date: 20140515
  Serious: No
  Sender: FDA-Public Use
  Company Number: US-ABBOTT-13P-163-1055699-00

PATIENT
  Age: 55 Year
  Sex: Female
  Weight: 44.49 kg

DRUGS (7)
  1. DEPAKOTE ER [Suspect]
     Indication: MIGRAINE
     Dates: start: 201211, end: 20130223
  2. PROTONIX [Concomitant]
     Indication: GASTROINTESTINAL DISORDER
  3. REMERON [Concomitant]
     Indication: DEPRESSION
  4. ZOFRAN [Concomitant]
     Indication: NAUSEA
  5. TRAMADOL [Concomitant]
     Indication: PAIN
  6. AMBIEN [Concomitant]
     Indication: INSOMNIA
  7. PROLIA [Concomitant]
     Indication: OSTEOPOROSIS

REACTIONS (6)
  - Abdominal distension [Not Recovered/Not Resolved]
  - Alopecia [Not Recovered/Not Resolved]
  - Arthralgia [Not Recovered/Not Resolved]
  - Oedema peripheral [Not Recovered/Not Resolved]
  - Alopecia [Not Recovered/Not Resolved]
  - Arthralgia [Not Recovered/Not Resolved]
